FAERS Safety Report 9137760 (Version 1)
Quarter: 2013Q1

REPORT INFORMATION
  Report Type: Spontaneous
  Country: US (occurrence: US)
  Receive Date: 20130304
  Receipt Date: 20130304
  Transmission Date: 20140127
  Serious: Yes (Death, Hospitalization, Other)
  Sender: FDA-Public Use
  Company Number: CHPA2013US003876

PATIENT
  Age: 50 Year
  Sex: Male

DRUGS (5)
  1. KERI ORIGINAL [Suspect]
     Dosage: UNK
     Route: 061
     Dates: start: 20111101
  2. ANTIBIOTIC                         /00121001/ [Concomitant]
  3. DIURETICS [Concomitant]
  4. COUMADIN ^BOOTS^ [Concomitant]
     Indication: CARDIAC FAILURE CONGESTIVE
  5. LISINOPRIL [Concomitant]
     Indication: CARDIAC FAILURE CONGESTIVE

REACTIONS (3)
  - Neoplasm malignant [Fatal]
  - Metastases to lung [Fatal]
  - Malaise [Unknown]
